FAERS Safety Report 9496691 (Version 3)
Quarter: 2014Q2

REPORT INFORMATION
  Report Type: Spontaneous
  Country: SE (occurrence: SE)
  Receive Date: 20130904
  Receipt Date: 20140410
  Transmission Date: 20141212
  Serious: Yes (Other)
  Sender: FDA-Public Use
  Company Number: PHHY2013SE095240

PATIENT
  Sex: Male

DRUGS (4)
  1. BICALUTAMIDE SANDOZ [Suspect]
     Dosage: 150 MG, QD
     Dates: start: 20130418, end: 201308
  2. BICALUTAMIDE SANDOZ [Suspect]
     Dosage: 50 MG, UNK
  3. BICALUTAMIDE RANBAXY [Suspect]
     Dosage: 150 MG, UNK
     Dates: end: 201308
  4. BICALUTAMIDE [Suspect]
     Dosage: 50 MG, QD

REACTIONS (8)
  - Arrhythmia [Not Recovered/Not Resolved]
  - Palpitations [Not Recovered/Not Resolved]
  - Dyspnoea [Recovering/Resolving]
  - Fatigue [Recovering/Resolving]
  - Skin hypertrophy [Unknown]
  - Hot flush [Recovering/Resolving]
  - Weight increased [Unknown]
  - Breast pain [Unknown]
